FAERS Safety Report 8799240 (Version 2)
Quarter: 2014Q2

REPORT INFORMATION
  Report Type: Spontaneous
  Country: US (occurrence: US)
  Receive Date: 20120920
  Receipt Date: 20140428
  Transmission Date: 20141212
  Serious: No
  Sender: FDA-Public Use
  Company Number: US-ASTRAZENECA-2012SE69236

PATIENT
  Age: 61 Year
  Sex: Female

DRUGS (2)
  1. NEXIUM [Suspect]
     Route: 048
  2. RANITIDINE [Suspect]
     Route: 065

REACTIONS (4)
  - Oesophageal discomfort [Unknown]
  - Asthma [Unknown]
  - Hypertensive heart disease [Unknown]
  - Drug dose omission [Unknown]
